FAERS Safety Report 9702469 (Version 1)
Quarter: 2013Q4

REPORT INFORMATION
  Report Type: Spontaneous
  Country: US (occurrence: US)
  Receive Date: 20131121
  Receipt Date: 20131121
  Transmission Date: 20140711
  Serious: No
  Sender: FDA-Public Use
  Company Number: US-PFIZER INC-2013330350

PATIENT
  Age: 60 Year
  Sex: Female

DRUGS (9)
  1. XANAX [Suspect]
     Dosage: UNK
  2. HALCION [Suspect]
     Dosage: UNK
  3. LORTAB [Suspect]
     Dosage: UNK
  4. CODEINE [Suspect]
     Dosage: UNK
  5. FEMRING [Suspect]
     Dosage: UNK
  6. JANUMET [Suspect]
     Dosage: UNK
  7. PRINIVIL [Suspect]
     Dosage: UNK
  8. PRO-AIR [Suspect]
     Dosage: UNK
  9. ZANAFLEX [Suspect]
     Dosage: UNK

REACTIONS (1)
  - Drug hypersensitivity [Unknown]
